FAERS Safety Report 9549834 (Version 1)
Quarter: 2013Q3

REPORT INFORMATION
  Report Type: Spontaneous
  Country: US (occurrence: US)
  Receive Date: 20130924
  Receipt Date: 20130924
  Transmission Date: 20140515
  Serious: Yes (Death)
  Sender: FDA-Public Use
  Company Number: US-ACTAVIS-2013-16522

PATIENT
  Age: 86 Year
  Sex: Female

DRUGS (4)
  1. FIORICET 50/325/40 (WATSON LABORATORIES) [Suspect]
     Indication: HEADACHE
     Dosage: UNK UNK, DAILY
     Route: 048
     Dates: start: 1995, end: 2007
  2. LEVAQUIN [Concomitant]
     Indication: PRODUCT USED FOR UNKNOWN INDICATION
     Route: 048
  3. CIPROFLOXACIN [Concomitant]
     Indication: PRODUCT USED FOR UNKNOWN INDICATION
     Route: 048
  4. TYLENOL NO.1 [Concomitant]
     Indication: PRODUCT USED FOR UNKNOWN INDICATION
     Route: 048

REACTIONS (2)
  - Death [Fatal]
  - Infection [Fatal]
